FAERS Safety Report 5044312-X (Version None)
Quarter: 2006Q2

REPORT INFORMATION
  Report Type: 
  Country: None (occurrence: None)
  Receive Date: 20060629
  Receipt Date: 20060619
  Transmission Date: 20061013
  Serious: Yes (Other)
  Sender: FDA-Public Use
  Company Number: 2006066847

PATIENT
  Age: 52 Year
  Sex: Male
  Weight: 91 kg

DRUGS (6)
  1. INSPRA [Suspect]
     Indication: CARDIAC FAILURE
     Dosage: 50 MG DAILY, ORAL
     Route: 048
     Dates: start: 20060222, end: 20060602
  2. TORSEMIDE [Concomitant]
  3. DIGITOXIN TAB [Concomitant]
  4. ATACAND PLUS                   (CANDESARTAN CILEXETIL, HYDROCHLOROTHIA [Concomitant]
  5. BELOC-ZOK MITE                       (METOPROLOL SUCCINATE) [Concomitant]
  6. CARDIAC THERAPY [Concomitant]

REACTIONS (5)
  - AGGRESSION [None]
  - FATIGUE [None]
  - NERVOUSNESS [None]
  - SENSORY DISTURBANCE [None]
  - SOMNOLENCE [None]
